FAERS Safety Report 10869514 (Version 5)
Quarter: 2015Q4

REPORT INFORMATION
  Report Type: Spontaneous
  Country: JP (occurrence: JP)
  Receive Date: 20150226
  Receipt Date: 20151113
  Transmission Date: 20160304
  Serious: Yes (Life-Threatening, Hospitalization, Other)
  Sender: FDA-Public Use
  Company Number: JP-GLAXOSMITHKLINE-JP2015JPN022427

PATIENT
  Age: 31 Year
  Sex: Female
  Weight: 44 kg

DRUGS (8)
  1. MAGMITT [Concomitant]
     Active Substance: MAGNESIUM OXIDE
     Dosage: UNK
     Dates: start: 20141208, end: 20150121
  2. BROTIZOLAM [Concomitant]
     Active Substance: BROTIZOLAM
     Dates: start: 20141208, end: 20150121
  3. ABILIFY [Concomitant]
     Active Substance: ARIPIPRAZOLE
     Dates: start: 20150216
  4. ROHYPNOL [Concomitant]
     Active Substance: FLUNITRAZEPAM
     Dates: start: 20141208, end: 20150121
  5. LUNESTA [Concomitant]
     Active Substance: ESZOPICLONE
     Dates: start: 20150109, end: 20150121
  6. LAMICTAL [Suspect]
     Active Substance: LAMOTRIGINE
     Indication: BIPOLAR DISORDER
     Dosage: 25 MG, QD
     Route: 048
     Dates: start: 20150109, end: 20150122
  7. LIMAS [Suspect]
     Active Substance: LITHIUM CARBONATE
     Indication: BIPOLAR DISORDER
     Dosage: 1000 MG, 1D
     Route: 048
     Dates: start: 20141208, end: 20150121
  8. LAC-B [Concomitant]
     Active Substance: BIFIDOBACTERIUM SPP.
     Dosage: UNK
     Dates: start: 20141208, end: 20150121

REACTIONS (44)
  - Stevens-Johnson syndrome [Recovering/Resolving]
  - Local swelling [Recovering/Resolving]
  - Oculomucocutaneous syndrome [Recovering/Resolving]
  - Pyrexia [Recovering/Resolving]
  - Oral mucosal eruption [Unknown]
  - Headache [Unknown]
  - Erythema of eyelid [Unknown]
  - Toxicity to various agents [Recovered/Resolved with Sequelae]
  - Lymphadenopathy [Unknown]
  - Dyslalia [Unknown]
  - Lip erosion [Unknown]
  - Erythema [Recovering/Resolving]
  - Swelling face [Unknown]
  - Psychiatric symptom [Unknown]
  - Face oedema [Unknown]
  - Drug eruption [Recovering/Resolving]
  - Fluid intake reduced [Unknown]
  - Oral mucosal erythema [Unknown]
  - Eyelid erosion [Unknown]
  - Conjunctivitis [Unknown]
  - Gait disturbance [Unknown]
  - Hyperthermia [Recovering/Resolving]
  - Pharyngeal erythema [Recovering/Resolving]
  - Conjunctival hyperaemia [Unknown]
  - Pharyngitis [Unknown]
  - Oral mucosa erosion [Unknown]
  - Rash erythematous [Unknown]
  - Erythema [Unknown]
  - Oropharyngeal pain [Recovering/Resolving]
  - Disseminated intravascular coagulation [Unknown]
  - General physical health deterioration [Unknown]
  - Scab [Unknown]
  - Feeling hot [Unknown]
  - Eyelid oedema [Unknown]
  - Eyelid function disorder [Unknown]
  - Skin exfoliation [Unknown]
  - Mumps [Unknown]
  - Enanthema [Unknown]
  - Eye discharge [Unknown]
  - Skin haemorrhage [Recovering/Resolving]
  - Rash [Recovering/Resolving]
  - Shock [Recovering/Resolving]
  - Ocular hyperaemia [Unknown]
  - Pyrexia [Unknown]

NARRATIVE: CASE EVENT DATE: 201501
